FAERS Safety Report 7065844-9 (Version None)
Quarter: 2010Q4

REPORT INFORMATION
  Report Type: 
  Country: None (occurrence: None)
  Receive Date: 20101027
  Receipt Date: 20101020
  Transmission Date: 20110411
  Serious: Yes (Other)
  Sender: FDA-Public Use
  Company Number: US-US-EMD SERONO, INC.-7019303

PATIENT
  Sex: Male
  Weight: 104 kg

DRUGS (9)
  1. REBIF [Suspect]
     Indication: MULTIPLE SCLEROSIS
     Route: 058
     Dates: start: 20100506, end: 20100619
  2. REBIF [Suspect]
     Route: 058
     Dates: start: 20100924, end: 20100101
  3. REBIF [Suspect]
     Route: 058
     Dates: start: 20101001, end: 20101001
  4. REBIF [Suspect]
     Route: 058
     Dates: start: 20101001
  5. ATIVAN [Concomitant]
  6. ALLOPURINOL [Concomitant]
     Indication: GOUT
     Dates: start: 20070101
  7. INDOCIN [Concomitant]
     Indication: GOUT
     Dates: end: 20101001
  8. ATENOLOL [Concomitant]
     Indication: HYPERTENSION
  9. COREG [Concomitant]
     Indication: HYPERTENSION
     Dates: start: 20100101

REACTIONS (2)
  - GOUT [None]
  - INFLUENZA LIKE ILLNESS [None]
